FAERS Safety Report 20986304 (Version 1)
Quarter: 2022Q2

REPORT INFORMATION
  Report Type: Report from Study
  Country: US (occurrence: US)
  Receive Date: 20220621
  Receipt Date: 20220621
  Transmission Date: 20220721
  Serious: Yes (Other)
  Sender: FDA-Public Use
  Company Number: US-CELGENE-USA-20220204487

PATIENT
  Age: 52 Year
  Sex: Female
  Weight: 114.31 kg

DRUGS (1)
  1. REVLIMID [Suspect]
     Active Substance: LENALIDOMIDE
     Indication: Plasma cell myeloma
     Dosage: 25 MILLIGRAM; 21/28 DAYS
     Route: 048
     Dates: start: 20211217

REACTIONS (5)
  - Pneumonia [Unknown]
  - Neuropathy peripheral [Unknown]
  - COVID-19 [Recovered/Resolved]
  - Blood potassium decreased [Unknown]
  - Vomiting [Unknown]

NARRATIVE: CASE EVENT DATE: 20211201
